FAERS Safety Report 5894656-4 (Version None)
Quarter: 2008Q3

REPORT INFORMATION
  Report Type: 
  Country: None (occurrence: None)
  Receive Date: 20080924
  Receipt Date: 20080923
  Transmission Date: 20090109
  Serious: Yes (Hospitalization)
  Sender: FDA-Public Use
  Company Number: US-BAYER-200826045GPV

PATIENT
  Age: 71 Year
  Sex: Male

DRUGS (13)
  1. NEXAVAR [Suspect]
     Indication: METASTATIC RENAL CELL CARCINOMA
     Dosage: TOTAL DAILY DOSE: 800 MG  UNIT DOSE: 200 MG
     Route: 048
     Dates: start: 20080811, end: 20080829
  2. NEXAVAR [Suspect]
     Route: 048
     Dates: start: 20080908, end: 20080914
  3. RHINTERLEUKIN-21 [Suspect]
     Indication: METASTATIC RENAL CELL CARCINOMA
     Dosage: UNIT DOSE: 10 MG/ML
     Route: 042
     Dates: start: 20080811, end: 20080814
  4. RHINTERLEUKIN-21 [Suspect]
     Dosage: UNIT DOSE: 10 MG/ML
     Route: 042
     Dates: start: 20080825, end: 20080828
  5. MEGACE [Concomitant]
     Indication: DRUG USE FOR UNKNOWN INDICATION
     Route: 065
     Dates: start: 20080828
  6. POTASSIUM PHOSPHATES [Concomitant]
     Indication: DRUG USE FOR UNKNOWN INDICATION
     Route: 065
     Dates: start: 20080828
  7. CARAFATE [Concomitant]
     Indication: DRUG USE FOR UNKNOWN INDICATION
     Route: 065
  8. DURAGESIC-100 [Concomitant]
     Indication: DRUG USE FOR UNKNOWN INDICATION
     Route: 065
  9. NORVASC [Concomitant]
     Indication: DRUG USE FOR UNKNOWN INDICATION
     Route: 065
  10. ALLOPURINOL [Concomitant]
     Indication: DRUG USE FOR UNKNOWN INDICATION
     Route: 065
  11. AMBIEN [Concomitant]
     Indication: DRUG USE FOR UNKNOWN INDICATION
     Route: 065
  12. RED BLOOD CELLS [Concomitant]
     Indication: HAEMOGLOBIN DECREASED
     Route: 065
  13. PHENERGAN HCL [Concomitant]
     Indication: VOMITING
     Route: 065
     Dates: start: 20080901

REACTIONS (3)
  - DEHYDRATION [None]
  - FEBRILE NEUTROPENIA [None]
  - VOMITING [None]
